FAERS Safety Report 8456832-6 (Version None)
Quarter: 2012Q2

REPORT INFORMATION
  Report Type: 
  Country: None (occurrence: None)
  Receive Date: 20120621
  Receipt Date: 20120620
  Transmission Date: 20120825
  Serious: No
  Sender: FDA-Public Use
  Company Number: US-PFIZER INC-2012149138

PATIENT
  Sex: Male
  Weight: 81.633 kg

DRUGS (10)
  1. ALPRAZOLAM [Suspect]
     Indication: ANXIETY
  2. VISTARIL [Concomitant]
     Indication: STRESS
     Dosage: UNK
  3. XANAX [Suspect]
     Indication: ANXIETY
  4. VISTARIL [Concomitant]
     Indication: ANXIETY
  5. XANAX [Suspect]
     Indication: STRESS
     Dosage: 2 MG, 2X/DAY
     Route: 048
  6. CELEXA [Concomitant]
     Indication: STRESS
     Dosage: UNK
  7. CELEXA [Concomitant]
     Indication: ANXIETY
  8. SEROQUEL [Concomitant]
     Indication: ANXIETY
  9. SEROQUEL [Concomitant]
     Indication: STRESS
     Dosage: UNK
  10. ALPRAZOLAM [Suspect]
     Indication: STRESS
     Dosage: 1 MG, 3X/DAY
     Route: 048
     Dates: start: 20120301

REACTIONS (2)
  - STRESS [None]
  - ANXIETY [None]
